FAERS Safety Report 6720735-5 (Version None)
Quarter: 2010Q2

REPORT INFORMATION
  Report Type: 
  Country: None (occurrence: None)
  Receive Date: 20100512
  Receipt Date: 20100504
  Transmission Date: 20101027
  Serious: Yes (Hospitalization)
  Sender: FDA-Public Use
  Company Number: US-BIOGENIDEC-2010BI013695

PATIENT
  Age: 61 Year
  Sex: Female

DRUGS (2)
  1. AVONEX [Suspect]
     Indication: MULTIPLE SCLEROSIS
     Route: 030
     Dates: start: 20061113, end: 20080829
  2. AVONEX [Suspect]
     Route: 030
     Dates: start: 20080922

REACTIONS (5)
  - ARTHRALGIA [None]
  - BACK PAIN [None]
  - BIPOLAR I DISORDER [None]
  - MOOD DISORDER DUE TO A GENERAL MEDICAL CONDITION [None]
  - NECK PAIN [None]
